FAERS Safety Report 6702846-3 (Version None)
Quarter: 2010Q2

REPORT INFORMATION
  Report Type: 
  Country: None (occurrence: None)
  Receive Date: 20100429
  Receipt Date: 20100429
  Transmission Date: 20101027
  Serious: No
  Sender: FDA-Public Use
  Company Number: None

PATIENT
  Sex: Male
  Weight: 92.0802 kg

DRUGS (3)
  1. SAPHRIS [Suspect]
     Indication: DEPRESSION
     Dosage: 5 MG I QHS SL
     Route: 060
     Dates: start: 20100421, end: 20100421
  2. LAMICTAL [Concomitant]
  3. CYMBALTA [Concomitant]

REACTIONS (5)
  - DRY MOUTH [None]
  - FALL [None]
  - SEDATION [None]
  - SOMNOLENCE [None]
  - SUDDEN ONSET OF SLEEP [None]
